FAERS Safety Report 10341904 (Version 3)
Quarter: 2014Q3

REPORT INFORMATION
  Report Type: Spontaneous
  Country: US (occurrence: None)
  Receive Date: 20140722
  Receipt Date: 20140828
  Transmission Date: 20150326
  Serious: Yes (Other)
  Sender: FDA-Public Use
  Company Number: AUR-APU-2014-07065

PATIENT
  Age: 92 Year
  Sex: Male
  Weight: 74.8 kg

DRUGS (3)
  1. SPIRIVA [Concomitant]
     Active Substance: TIOTROPIUM BROMIDE MONOHYDRATE
  2. TERBINAFINE HYDOCHLORIDE [Suspect]
     Active Substance: TERBINAFINE HYDROCHLORIDE
     Indication: ONYCHOMYCOSIS
     Dosage: THEAPY DATES: 12/12/2013 TO 09/12/2014
     Route: 048
     Dates: start: 20131212, end: 20140215
  3. ADVAIR DISKUS [Concomitant]
     Active Substance: FLUTICASONE PROPIONATE\SALMETEROL XINAFOATE

REACTIONS (6)
  - Decreased appetite [None]
  - Asthenia [None]
  - Ageusia [None]
  - Weight decreased [None]
  - Drug ineffective [None]
  - Fatigue [None]
